FAERS Safety Report 6670743-8 (Version None)
Quarter: 2010Q2

REPORT INFORMATION
  Report Type: 
  Country: None (occurrence: None)
  Receive Date: 20100407
  Receipt Date: 20100325
  Transmission Date: 20101027
  Serious: Yes (Other)
  Sender: FDA-Public Use
  Company Number: PHHY2010US18664

PATIENT
  Sex: Male

DRUGS (5)
  1. ZOMETA [Suspect]
     Dosage: UNK
     Dates: start: 20060117, end: 20090703
  2. BABY ASPIRIN [Concomitant]
  3. PLAVIX [Concomitant]
  4. PAMIPILL [Concomitant]
  5. CHEMOTHERAPEUTICS NOS [Concomitant]
     Dosage: UNK
     Dates: start: 20090703

REACTIONS (4)
  - GINGIVAL DISORDER [None]
  - IMPAIRED HEALING [None]
  - STOMATITIS [None]
  - TOOTH LOSS [None]
